FAERS Safety Report 9690887 (Version 2)
Quarter: 2013Q4

REPORT INFORMATION
  Report Type: Spontaneous
  Country: US (occurrence: US)
  Receive Date: 20131115
  Receipt Date: 20131204
  Transmission Date: 20140711
  Serious: No
  Sender: FDA-Public Use
  Company Number: US-TEVA-443926USA

PATIENT
  Sex: Female

DRUGS (10)
  1. AZILECT [Suspect]
     Indication: PARKINSON^S DISEASE
     Route: 048
  2. INDERAL [Suspect]
     Indication: PARKINSON^S DISEASE
     Dates: start: 201301
  3. LISINOPRIL [Suspect]
  4. NUPRO PATCH [Concomitant]
     Indication: PARKINSON^S DISEASE
  5. AMANTADINE [Concomitant]
     Indication: PARKINSON^S DISEASE
  6. RELAFEN [Concomitant]
     Indication: ARTHRITIS
  7. SOMA [Concomitant]
     Indication: MUSCLE SPASMS
  8. KLONOPIN [Concomitant]
     Indication: ANXIETY
  9. MULTIVITAMIN [Concomitant]
     Indication: VITAMIN SUPPLEMENTATION
  10. DELSYM [Concomitant]

REACTIONS (2)
  - Cough [Recovered/Resolved]
  - Nasal congestion [Recovered/Resolved]
